FAERS Safety Report 25166045 (Version 2)
Quarter: 2025Q2

REPORT INFORMATION
  Report Type: Report from Study
  Country: US (occurrence: US)
  Receive Date: 20250407
  Receipt Date: 20250429
  Transmission Date: 20250716
  Serious: No
  Sender: SUNOVION
  Company Number: US-SMPA-2025SPA003692AA

PATIENT

DRUGS (18)
  1. ORGOVYX [Suspect]
     Active Substance: RELUGOLIX
     Indication: Prostate cancer
     Dosage: 360 MG, SINGLE
     Route: 048
     Dates: start: 20250301, end: 20250301
  2. ORGOVYX [Suspect]
     Active Substance: RELUGOLIX
     Dosage: 120 MG, QD
     Route: 048
     Dates: start: 20250302
  3. ANASTROZOLE [Concomitant]
     Active Substance: ANASTROZOLE
     Route: 065
  4. Bendazole [Concomitant]
     Route: 065
  5. BERBERINE [Concomitant]
     Active Substance: BERBERINE
     Route: 048
  6. BROMELAINS [Concomitant]
     Active Substance: BROMELAINS
     Route: 065
  7. TEA LEAF [Concomitant]
     Active Substance: TEA LEAF
     Route: 065
  8. IVERMECTIN [Concomitant]
     Active Substance: IVERMECTIN
     Route: 065
  9. MAGNESIUM [Concomitant]
     Active Substance: MAGNESIUM
     Route: 065
  10. MELATONIN [Concomitant]
     Active Substance: MELATONIN
     Route: 065
  11. NAC [Concomitant]
     Route: 065
  12. NATTOKINASE [Concomitant]
     Active Substance: NATTOKINASE
     Route: 065
  13. OMEGA-3 ACIDS [Concomitant]
     Active Substance: OMEGA-3 FATTY ACIDS
     Route: 065
  14. HERBALS\TURMERIC [Concomitant]
     Active Substance: HERBALS\TURMERIC
     Route: 065
  15. THIAMINE [Concomitant]
     Active Substance: THIAMINE
     Route: 065
  16. VITAMIN C [Concomitant]
     Active Substance: ASCORBIC ACID
     Route: 065
  17. ZINC [Concomitant]
     Active Substance: ZINC
     Route: 065
  18. FISH OIL [Concomitant]
     Active Substance: FISH OIL
     Route: 065

REACTIONS (13)
  - Cough [Unknown]
  - Malaise [Unknown]
  - Night sweats [Not Recovered/Not Resolved]
  - Palpitations [Not Recovered/Not Resolved]
  - Erectile dysfunction [Not Recovered/Not Resolved]
  - Tearfulness [Not Recovered/Not Resolved]
  - Brain fog [Not Recovered/Not Resolved]
  - Loss of libido [Not Recovered/Not Resolved]
  - Constipation [Recovered/Resolved]
  - Diarrhoea [Recovered/Resolved]
  - Hot flush [Not Recovered/Not Resolved]
  - Dizziness [Not Recovered/Not Resolved]
  - Fatigue [Not Recovered/Not Resolved]
